FAERS Safety Report 9401487 (Version 1)
Quarter: 2013Q3

REPORT INFORMATION
  Report Type: Spontaneous
  Country: US (occurrence: US)
  Receive Date: 20130716
  Receipt Date: 20130716
  Transmission Date: 20140515
  Serious: Yes (Hospitalization, Other)
  Sender: FDA-Public Use
  Company Number: US-PFIZER INC-2013202560

PATIENT
  Age: 80 Year
  Sex: Male

DRUGS (8)
  1. LIDOCAINE HCL [Suspect]
     Indication: ANAESTHESIA
     Dosage: ONE ML OF 1%
  2. TRIAMCINOLONE ACETONIDE [Suspect]
     Indication: LUMBAR SPINAL STENOSIS
     Dosage: 80 MG
     Route: 008
  3. TRIAMCINOLONE ACETONIDE [Suspect]
     Indication: PAIN
  4. VALSARTAN [Concomitant]
  5. HYDROCHLOROTHIAZIDE [Concomitant]
  6. DIAZEPAM [Concomitant]
  7. HYDROCODONE W/ACETAMINOPHEN [Concomitant]
  8. PRAVASTATIN [Concomitant]

REACTIONS (6)
  - Spinal cord infarction [Not Recovered/Not Resolved]
  - Paraplegia [Unknown]
  - Incontinence [Not Recovered/Not Resolved]
  - Faecal incontinence [Not Recovered/Not Resolved]
  - Pain in extremity [Unknown]
  - Hyperhidrosis [Unknown]
